FAERS Safety Report 9563400 (Version 1)
Quarter: 2013Q1

REPORT INFORMATION
  Report Type: Spontaneous
  Country: US (occurrence: None)
  Receive Date: 20121218
  Receipt Date: 20121218
  Transmission Date: 20140127
  Serious: Yes (Death)
  Sender: FDA-Public Use
  Company Number: PHEH2012US009338

PATIENT
  Age: 48 Year
  Sex: Male

DRUGS (1)
  1. ZOMETA (ZOLEDRONATE) UNKNOWN [Suspect]
     Dosage: 4MG/5ML?

REACTIONS (2)
  - Neoplasm progression [None]
  - Neoplasm malignant [None]
